FAERS Safety Report 6618529-4 (Version None)
Quarter: 2010Q1

REPORT INFORMATION
  Report Type: 
  Country: None (occurrence: None)
  Receive Date: 20100223
  Receipt Date: 20091104
  Transmission Date: 20100710
  Serious: No
  Sender: FDA-Public Use
  Company Number: 8054205

PATIENT
  Age: 38 Year
  Sex: Female

DRUGS (1)
  1. CERTOLIZUMAB PEGOL (UCB, INC) [Suspect]
     Indication: CROHN'S DISEASE
     Dosage: 400 MG, MONTHLY DOSE FREQ.: ONCE MONTHLY SUBCUTANEOUS
     Route: 058
     Dates: start: 20090501, end: 20091101

REACTIONS (1)
  - OLIGOMENORRHOEA [None]
